FAERS Safety Report 5349549-8 (Version None)
Quarter: 2007Q2

REPORT INFORMATION
  Report Type: 
  Country: None (occurrence: None)
  Receive Date: 20070510
  Receipt Date: 20070122
  Transmission Date: 20071010
  Serious: No
  Sender: FDA-Public Use
  Company Number: WAES 0701USA03592

PATIENT
  Age: 83 Year
  Sex: Male

DRUGS (3)
  1. ZOLINZA [Suspect]
     Indication: T-CELL LYMPHOMA
     Dosage: 100MG/TID/PO
     Route: 048
     Dates: start: 20061228
  2. DEXAMETHASONE 0.5MG TAB [Concomitant]
  3. NADOLOL [Concomitant]

REACTIONS (10)
  - ADVERSE EVENT [None]
  - ANXIETY [None]
  - ASTHENIA [None]
  - CHILLS [None]
  - DRY SKIN [None]
  - MALAISE [None]
  - NERVOUSNESS [None]
  - RASH GENERALISED [None]
  - SKIN EXFOLIATION [None]
  - WEIGHT DECREASED [None]
